FAERS Safety Report 4422737-0 (Version None)
Quarter: 2004Q3

REPORT INFORMATION
  Report Type: 
  Country: None (occurrence: None)
  Receive Date: 20040713
  Receipt Date: 20040513
  Transmission Date: 20050211
  Serious: No
  Sender: FDA-Public Use
  Company Number: PHEH2004US05334

PATIENT
  Age: 57 Year
  Sex: Female

DRUGS (2)
  1. ELIDEL [Suspect]
     Indication: ECZEMA
     Dosage: BID, TOPICAL
     Route: 061
     Dates: start: 20040429
  2. DIPROLENE CREAM (BETAMETHASONE DIPROPIONATE) [Concomitant]

REACTIONS (1)
  - BLISTER [None]
